FAERS Safety Report 19709683 (Version 3)
Quarter: 2021Q3

REPORT INFORMATION
  Report Type: Spontaneous
  Country: PL (occurrence: PL)
  Receive Date: 20210817
  Receipt Date: 20210826
  Transmission Date: 20211014
  Serious: Yes (Other)
  Sender: FDA-Public Use
  Company Number: PL-PFIZER INC-202101017497

PATIENT
  Age: 68 Year
  Sex: Female

DRUGS (5)
  1. DULOXETINE. [Interacting]
     Active Substance: DULOXETINE
     Indication: DEPRESSION
     Dosage: 60 MG, DAILY
  2. CIPROFLOXACIN. [Interacting]
     Active Substance: CIPROFLOXACIN
     Indication: ARTHRITIS
     Dosage: 1000 MILLIGRAM, QD
     Route: 048
  3. METOPROLOL. [Interacting]
     Active Substance: METOPROLOL
     Indication: DEPRESSION
     Dosage: 100 MG, DAILY (METOPROLOL ZOK)
  4. ALPRAZOLAM. [Interacting]
     Active Substance: ALPRAZOLAM
     Indication: DEPRESSION
     Dosage: 0.5 MG, 2X/DAY (ALPRAZOLAM SR )
  5. CELECOXIB. [Suspect]
     Active Substance: CELECOXIB
     Indication: ARTHRITIS
     Dosage: 400 MILLIGRAM, QD
     Route: 065

REACTIONS (9)
  - Excessive eye blinking [Recovered/Resolved]
  - Hyperhidrosis [Recovered/Resolved]
  - Drug interaction [Unknown]
  - Hallucination, visual [Recovered/Resolved]
  - Dyschromatopsia [Recovered/Resolved]
  - Visual impairment [Recovered/Resolved]
  - Eye pain [Recovered/Resolved]
  - Drug level increased [Unknown]
  - Eye irritation [Recovered/Resolved]
